FAERS Safety Report 6603246-7 (Version None)
Quarter: 2010Q1

REPORT INFORMATION
  Report Type: 
  Country: None (occurrence: None)
  Receive Date: 20100218
  Receipt Date: 20100205
  Transmission Date: 20100710
  Serious: Yes (Hospitalization)
  Sender: FDA-Public Use
  Company Number: 230003M10AUS

PATIENT
  Sex: Female

DRUGS (2)
  1. REBIF [Suspect]
     Dates: start: 20090601, end: 20100101
  2. ANTIDEPRESSANT (ANTIDEPRESSANT) [Concomitant]

REACTIONS (1)
  - HYPERTENSION [None]
